FAERS Safety Report 5932744-4 (Version None)
Quarter: 2008Q4

REPORT INFORMATION
  Report Type: 
  Country: None (occurrence: None)
  Receive Date: 20081027
  Receipt Date: 20081027
  Transmission Date: 20090506
  Serious: Yes (Death)
  Sender: FDA-Public Use
  Company Number: None

PATIENT
  Sex: Male

DRUGS (8)
  1. REVLIMID [Suspect]
     Indication: MULTIPLE MYELOMA
     Dosage: 15MG DAILY 21D/28D ORAL
     Route: 048
  2. DECADRON [Suspect]
     Indication: MULTIPLE MYELOMA
     Dosage: 20MG WEEKLY ORAL
     Route: 048
  3. COMPAZINE [Concomitant]
  4. ONDANSETRON [Concomitant]
  5. LASIX [Concomitant]
  6. K-TAB [Concomitant]
  7. OMEPRAZOLE [Concomitant]
  8. MOTRIN [Concomitant]

REACTIONS (4)
  - CONFUSIONAL STATE [None]
  - HYPERCALCAEMIA [None]
  - PAIN [None]
  - RENAL FAILURE ACUTE [None]
